FAERS Safety Report 23057282 (Version 2)
Quarter: 2023Q4

REPORT INFORMATION
  Report Type: Spontaneous
  Country: US (occurrence: US)
  Receive Date: 20231012
  Receipt Date: 20231023
  Transmission Date: 20240110
  Serious: Yes (Life-Threatening, Hospitalization)
  Sender: FDA-Public Use
  Company Number: US-TEVA-2023-US-2933071

PATIENT
  Age: 55 Year
  Sex: Female

DRUGS (7)
  1. LIDOCAINE [Suspect]
     Active Substance: LIDOCAINE
     Indication: Anaesthesia
     Dosage: 1L SODIUM-CHLORIDE SOLUTION INFUSED WITH LIDOCAINE WITH MAXIMUM DOSAGE OF 17.8 MG/KG ALONG WITH
     Route: 050
  2. ALPRAZOLAM [Suspect]
     Active Substance: ALPRAZOLAM
     Indication: Seizure prophylaxis
     Route: 065
  3. ALPRAZOLAM [Suspect]
     Active Substance: ALPRAZOLAM
     Indication: Anxiolytic therapy
  4. SODIUM CHLORIDE [Concomitant]
     Active Substance: SODIUM CHLORIDE
     Indication: Vehicle solution use
     Dosage: 1L SODIUM-CHLORIDE SOLUTION INFUSED WITH LIDOCAINE, EPINEPHRINE, SODIUM BICARBONATE ROUTE: INFUSION
     Route: 050
  5. EPINEPHRINE [Concomitant]
     Active Substance: EPINEPHRINE
     Indication: Product used for unknown indication
     Dosage: 1L SODIUM-CHLORIDE SOLUTION INFUSED WITH LIDOCAINE, EPINEPHRINE, SODIUM BICARBONATE ROUTE: INFUSION
     Route: 050
  6. SODIUM BICARBONATE [Concomitant]
     Active Substance: SODIUM BICARBONATE
     Indication: Product used for unknown indication
     Dosage: 1L SODIUM-CHLORIDE SOLUTION INFUSED WITH LIDOCAINE, EPINEPHRINE, SODIUM BICARBONATE ROUTE: INFUSION
     Route: 050
  7. NITROUS OXIDE [Concomitant]
     Active Substance: NITROUS OXIDE
     Indication: Anxiolytic therapy
     Dosage: ONE BREATHE
     Route: 065

REACTIONS (4)
  - Seizure [Recovered/Resolved]
  - Depressed level of consciousness [Recovered/Resolved]
  - Systemic toxicity [Unknown]
  - Drug ineffective [Unknown]
